FAERS Safety Report 11272005 (Version 1)
Quarter: 2015Q3

REPORT INFORMATION
  Report Type: Spontaneous
  Country: US (occurrence: None)
  Receive Date: 20150713
  Receipt Date: 20150713
  Transmission Date: 20151125
  Serious: Yes (Other)
  Sender: FDA-Public Use
  Company Number: None

PATIENT
  Age: 29 Year
  Sex: Female
  Weight: 55.34 kg

DRUGS (2)
  1. FLAGYL [Suspect]
     Active Substance: METRONIDAZOLE\METRONIDAZOLE HYDROCHLORIDE
     Indication: VAGINITIS BACTERIAL
     Route: 048
     Dates: start: 20150102, end: 20150108
  2. OMEPRAZOLE. [Concomitant]
     Active Substance: OMEPRAZOLE

REACTIONS (4)
  - Paraesthesia [None]
  - Burning sensation [None]
  - Neuropathy peripheral [None]
  - Hypoaesthesia [None]

NARRATIVE: CASE EVENT DATE: 20150109
